FAERS Safety Report 7644003-2 (Version None)
Quarter: 2011Q3

REPORT INFORMATION
  Report Type: 
  Country: None (occurrence: None)
  Receive Date: 20110729
  Receipt Date: 20110719
  Transmission Date: 20111222
  Serious: Yes (Life-Threatening, Hospitalization)
  Sender: FDA-Public Use
  Company Number: JP-EISAI INC-E3810-04818-SPO-JP

PATIENT
  Age: 81 Year
  Sex: Female
  Weight: 38 kg

DRUGS (6)
  1. ADALAT [Concomitant]
     Indication: HYPERTENSION
     Route: 048
     Dates: start: 20110407
  2. MUCOSTA [Concomitant]
     Indication: PROPHYLAXIS
     Route: 048
     Dates: start: 20110407
  3. RABEPRAZOLE SODIUM [Suspect]
     Indication: GASTROOESOPHAGEAL REFLUX DISEASE
     Route: 048
     Dates: start: 20110407, end: 20110415
  4. CARVEDILOL [Concomitant]
     Indication: HYPERTENSION
     Route: 048
     Dates: start: 20110407
  5. FESIN [Concomitant]
     Indication: ANAEMIA
     Route: 042
     Dates: start: 20110406, end: 20110414
  6. LASIX [Concomitant]
     Indication: CARDIAC FAILURE
     Route: 042
     Dates: end: 20110412

REACTIONS (1)
  - HYPONATRAEMIA [None]
